FAERS Safety Report 10627062 (Version 1)
Quarter: 2014Q4

REPORT INFORMATION
  Report Type: Spontaneous
  Country: NL (occurrence: NL)
  Receive Date: 20141204
  Receipt Date: 20141204
  Transmission Date: 20150529
  Serious: Yes (Death, Other)
  Sender: FDA-Public Use
  Company Number: NL-CELGENE-NLD-2014120277

PATIENT

DRUGS (11)
  1. THALIDOMIDE [Suspect]
     Active Substance: THALIDOMIDE
     Route: 048
  2. CARFILZOMIB [Concomitant]
     Active Substance: CARFILZOMIB
     Indication: PLASMA CELL MYELOMA
     Route: 041
  3. CARFILZOMIB [Concomitant]
     Active Substance: CARFILZOMIB
     Route: 041
  4. CARFILZOMIB [Concomitant]
     Active Substance: CARFILZOMIB
     Route: 041
  5. DEXAMETHASONE. [Concomitant]
     Active Substance: DEXAMETHASONE
     Indication: PLASMA CELL MYELOMA
     Route: 048
  6. THALIDOMIDE [Suspect]
     Active Substance: THALIDOMIDE
     Indication: PLASMA CELL MYELOMA
     Route: 048
  7. G-CSF [Concomitant]
     Active Substance: FILGRASTIM
     Indication: BLOOD STEM CELL HARVEST
     Route: 065
  8. DEXAMETHASONE. [Concomitant]
     Active Substance: DEXAMETHASONE
     Route: 048
  9. CYCLOPHOSPHAMIDE. [Concomitant]
     Active Substance: CYCLOPHOSPHAMIDE
     Indication: BLOOD STEM CELL HARVEST
     Dosage: G/M2
     Route: 065
  10. CARFILZOMIB [Concomitant]
     Active Substance: CARFILZOMIB
     Dosage: 20/36MG/M2, 20/45 MG/M2 OR 20/56MG/M2.
     Route: 041
  11. MELPHALAN [Concomitant]
     Active Substance: MELPHALAN
     Indication: BLOOD STEM CELL HARVEST
     Route: 065

REACTIONS (10)
  - Cardiac disorder [Unknown]
  - Plasma cell myeloma [Unknown]
  - Death [Fatal]
  - Thrombosis [Unknown]
  - Tumour lysis syndrome [Unknown]
  - Polyneuropathy [Unknown]
  - Pneumonia [Unknown]
  - Neoplasm malignant [Unknown]
  - Infection [Unknown]
  - Gastrointestinal disorder [Unknown]
